FAERS Safety Report 5950445-3 (Version None)
Quarter: 2008Q4

REPORT INFORMATION
  Report Type: 
  Country: None (occurrence: None)
  Receive Date: 20081112
  Receipt Date: 20081105
  Transmission Date: 20090506
  Serious: Yes (Life-Threatening, Hospitalization)
  Sender: FDA-Public Use
  Company Number: US-GENENTECH-271032

PATIENT
  Sex: Female
  Weight: 54.422 kg

DRUGS (19)
  1. XOLAIR [Suspect]
     Indication: ASTHMA
     Dosage: UNK
     Route: 058
     Dates: start: 20080828
  2. VENTOLIN HFA [Concomitant]
     Indication: DRUG USE FOR UNKNOWN INDICATION
  3. ALBUTEROL [Concomitant]
     Indication: DRUG USE FOR UNKNOWN INDICATION
  4. ASPIRIN [Concomitant]
     Indication: DRUG USE FOR UNKNOWN INDICATION
     Dosage: 325 MG, UNK
  5. CARAC [Concomitant]
     Indication: DRUG USE FOR UNKNOWN INDICATION
     Dosage: 0.5 %, UNK
  6. DDAVP [Concomitant]
     Indication: DRUG USE FOR UNKNOWN INDICATION
  7. BENADRYL [Concomitant]
     Indication: PREMEDICATION
  8. EPIPEN [Concomitant]
     Indication: DRUG USE FOR UNKNOWN INDICATION
  9. LEVOTHROID [Concomitant]
     Indication: DRUG USE FOR UNKNOWN INDICATION
     Dosage: 137 MG, UNK
  10. MAXALT [Concomitant]
     Indication: DRUG USE FOR UNKNOWN INDICATION
  11. SINGULAIR [Concomitant]
     Indication: DRUG USE FOR UNKNOWN INDICATION
     Dosage: 10 MG, UNK
  12. MYCELEX [Concomitant]
     Indication: DRUG USE FOR UNKNOWN INDICATION
  13. NYSTATIN [Concomitant]
     Indication: DRUG USE FOR UNKNOWN INDICATION
  14. PREDNISONE TAB [Concomitant]
     Indication: PREMEDICATION
  15. ZANTAC [Concomitant]
     Indication: PREMEDICATION
  16. PREMARIN [Concomitant]
     Indication: DRUG USE FOR UNKNOWN INDICATION
  17. RETIN-A [Concomitant]
     Indication: DRUG USE FOR UNKNOWN INDICATION
  18. VERAPAMIL [Concomitant]
     Indication: DRUG USE FOR UNKNOWN INDICATION
  19. CETIRIZINE HCL [Concomitant]
     Indication: DRUG USE FOR UNKNOWN INDICATION

REACTIONS (5)
  - ANAPHYLACTIC REACTION [None]
  - ERYTHEMA [None]
  - LIP SWELLING [None]
  - PARAESTHESIA ORAL [None]
  - THROAT IRRITATION [None]
